FAERS Safety Report 16724528 (Version 1)
Quarter: 2019Q3

REPORT INFORMATION
  Report Type: Report from Study
  Country: US (occurrence: US)
  Receive Date: 20190821
  Receipt Date: 20190821
  Transmission Date: 20191005
  Serious: Yes (Other)
  Sender: FDA-Public Use
  Company Number: US-JNJFOC-20190809037

PATIENT
  Sex: Male

DRUGS (2)
  1. DOXORUBICIN HYDROCHLORIDE. [Suspect]
     Active Substance: DOXORUBICIN HYDROCHLORIDE
     Indication: KAPOSI^S SARCOMA
     Route: 065
  2. BEVACIZUMAB. [Suspect]
     Active Substance: BEVACIZUMAB
     Indication: KAPOSI^S SARCOMA
     Route: 065

REACTIONS (13)
  - Proteinuria [Unknown]
  - Haematuria [Unknown]
  - Thrombocytopenia [Unknown]
  - Cerebral ischaemia [Unknown]
  - Tooth disorder [Unknown]
  - Epistaxis [Unknown]
  - Vomiting [Unknown]
  - Gastrointestinal haemorrhage [Unknown]
  - Anaemia [Unknown]
  - Headache [Unknown]
  - Neutropenia [Unknown]
  - Hypertension [Unknown]
  - Infection [Unknown]
